FAERS Safety Report 9403248 (Version 4)
Quarter: 2013Q3

REPORT INFORMATION
  Report Type: Report from Study
  Country: US (occurrence: US)
  Receive Date: 20130716
  Receipt Date: 20130830
  Transmission Date: 20140515
  Serious: Yes (Hospitalization, Other)
  Sender: FDA-Public Use
  Company Number: US-ACTELION-A-US2013-85915

PATIENT
  Age: 77 Year
  Sex: Male

DRUGS (3)
  1. VENTAVIS [Suspect]
     Indication: PULMONARY ARTERIAL HYPERTENSION
     Route: 055
  2. TRACLEER [Suspect]
     Indication: PULMONARY ARTERIAL HYPERTENSION
     Dosage: UNK
     Route: 048
  3. COUMADIN [Suspect]

REACTIONS (7)
  - Bladder cancer [Unknown]
  - Haemorrhage [Unknown]
  - Local swelling [Not Recovered/Not Resolved]
  - Cystitis [Not Recovered/Not Resolved]
  - Device issue [Unknown]
  - Asthenia [Unknown]
  - Fatigue [Unknown]
